FAERS Safety Report 6447894-6 (Version None)
Quarter: 2009Q4

REPORT INFORMATION
  Report Type: 
  Country: None (occurrence: None)
  Receive Date: 20091120
  Receipt Date: 20091112
  Transmission Date: 20100525
  Serious: Yes (Hospitalization, Other)
  Sender: FDA-Public Use
  Company Number: US-JNJFOC-20091104585

PATIENT
  Sex: Female
  Weight: 60.78 kg

DRUGS (5)
  1. DURAGESIC-100 [Suspect]
     Route: 062
  2. DURAGESIC-100 [Suspect]
     Route: 062
  3. DURAGESIC-100 [Suspect]
     Route: 062
  4. DURAGESIC-100 [Suspect]
     Indication: MIGRAINE
     Route: 062
  5. EFFEXOR [Suspect]
     Indication: MAJOR DEPRESSION
     Route: 048

REACTIONS (9)
  - BIPOLAR II DISORDER [None]
  - DRUG DEPENDENCE [None]
  - HEADACHE [None]
  - MIGRAINE [None]
  - MUSCLE SPASMS [None]
  - NEOPLASM [None]
  - STRESS [None]
  - VOMITING [None]
  - WITHDRAWAL SYNDROME [None]
